FAERS Safety Report 11633082 (Version 3)
Quarter: 2016Q1

REPORT INFORMATION
  Report Type: Spontaneous
  Country: US (occurrence: US)
  Receive Date: 20151015
  Receipt Date: 20160106
  Transmission Date: 20160525
  Serious: No
  Sender: FDA-Public Use
  Company Number: US-009507513-1510USA003969

PATIENT
  Age: 66 Year
  Sex: Male

DRUGS (4)
  1. PRINIVIL [Concomitant]
     Active Substance: LISINOPRIL
     Dosage: UNK
     Route: 048
  2. CARVEDILOL. [Concomitant]
     Active Substance: CARVEDILOL
     Dosage: UNK
  3. BELSOMRA [Suspect]
     Active Substance: SUVOREXANT
     Indication: INSOMNIA
     Dosage: 20 MGS/1 ONCE NIGHTLY
     Route: 048
     Dates: start: 20151002, end: 20151005
  4. CRESTOR [Concomitant]
     Active Substance: ROSUVASTATIN CALCIUM
     Dosage: UNK

REACTIONS (5)
  - Drug ineffective [Unknown]
  - Nightmare [Unknown]
  - Abnormal dreams [Unknown]
  - Middle insomnia [Unknown]
  - Initial insomnia [Unknown]

NARRATIVE: CASE EVENT DATE: 201510
